FAERS Safety Report 8390751-9 (Version None)
Quarter: 2012Q2

REPORT INFORMATION
  Report Type: 
  Country: None (occurrence: None)
  Receive Date: 20120529
  Receipt Date: 20120519
  Transmission Date: 20120825
  Serious: Yes (Other)
  Sender: FDA-Public Use
  Company Number: US-JNJFOC-20120516975

PATIENT
  Sex: Female
  Weight: 63.5 kg

DRUGS (4)
  1. XARELTO [Suspect]
     Route: 048
     Dates: start: 20120402, end: 20120412
  2. SYNTHROID [Concomitant]
     Indication: THYROID DISORDER
     Route: 048
  3. XARELTO [Suspect]
     Indication: ATRIAL FIBRILLATION
     Route: 048
     Dates: start: 20120413
  4. SOTALOL HCL [Concomitant]
     Indication: HEART RATE IRREGULAR
     Route: 048

REACTIONS (6)
  - SUPRAVENTRICULAR EXTRASYSTOLES [None]
  - ABDOMINAL PAIN UPPER [None]
  - HYPOAESTHESIA [None]
  - WRONG TECHNIQUE IN DRUG USAGE PROCESS [None]
  - SKIN WARM [None]
  - PLANTAR ERYTHEMA [None]
